FAERS Safety Report 5649182-4 (Version None)
Quarter: 2008Q1

REPORT INFORMATION
  Report Type: 
  Country: None (occurrence: None)
  Receive Date: 20080229
  Receipt Date: 20080225
  Transmission Date: 20080703
  Serious: Yes (Other)
  Sender: FDA-Public Use
  Company Number: TPA2008A00246

PATIENT
  Age: 56 Year
  Sex: Female

DRUGS (3)
  1. ROZEREM [Suspect]
     Indication: INSOMNIA
     Dosage: PER ORAL
     Route: 048
  2. AMBIEN [Concomitant]
  3. RESTORIL [Concomitant]

REACTIONS (1)
  - SUICIDAL IDEATION [None]
